FAERS Safety Report 9383523 (Version 1)
Quarter: 2013Q3

REPORT INFORMATION
  Report Type: Spontaneous
  Country: US (occurrence: US)
  Receive Date: 20130704
  Receipt Date: 20130704
  Transmission Date: 20140515
  Serious: No
  Sender: FDA-Public Use
  Company Number: US-PFIZER INC-2013196716

PATIENT
  Age: 47 Year
  Sex: Female
  Weight: 136 kg

DRUGS (1)
  1. GLUCOTROL [Suspect]
     Indication: TYPE 2 DIABETES MELLITUS
     Dosage: 10 MG, 1X/DAY
     Dates: start: 201108

REACTIONS (1)
  - Drug ineffective [Unknown]
